FAERS Safety Report 26066750 (Version 1)
Quarter: 2025Q4

REPORT INFORMATION
  Report Type: Spontaneous
  Country: US (occurrence: US)
  Receive Date: 20251119
  Receipt Date: 20251119
  Transmission Date: 20260118
  Serious: Yes (Disabling)
  Sender: NOVO NORDISK
  Company Number: US-NOVOPROD-1564001

PATIENT
  Age: 65 Year
  Sex: Female

DRUGS (1)
  1. WEGOVY [Suspect]
     Active Substance: SEMAGLUTIDE
     Indication: Obesity
     Dosage: 2.4 MG, QW

REACTIONS (6)
  - Disability [Unknown]
  - Hunger [Recovered/Resolved]
  - Eating disorder [Recovered/Resolved]
  - Weight increased [Recovered/Resolved]
  - Nausea [Recovered/Resolved]
  - Vomiting [Recovered/Resolved]

NARRATIVE: CASE EVENT DATE: 20240529
